FAERS Safety Report 6273804-0 (Version None)
Quarter: 2009Q3

REPORT INFORMATION
  Report Type: 
  Country: None (occurrence: None)
  Receive Date: 20090720
  Receipt Date: 20090707
  Transmission Date: 20100115
  Serious: Yes (Other)
  Sender: FDA-Public Use
  Company Number: B0584269A

PATIENT
  Sex: Female

DRUGS (2)
  1. HYCAMTIN [Suspect]
     Indication: OVARIAN CANCER
     Route: 042
     Dates: start: 20080825, end: 20080829
  2. KYTRIL [Concomitant]
     Route: 065
     Dates: start: 20080825, end: 20080829

REACTIONS (1)
  - ANAEMIA [None]
